FAERS Safety Report 4825265-3 (Version None)
Quarter: 2005Q4

REPORT INFORMATION
  Report Type: 
  Country: None (occurrence: None)
  Receive Date: 20051109
  Receipt Date: 20051025
  Transmission Date: 20060501
  Serious: Yes (Death)
  Sender: FDA-Public Use
  Company Number: FR-2005-020339

PATIENT
  Age: 49 Year
  Sex: Female
  Weight: 73 kg

DRUGS (10)
  1. MAGNEVIST [Suspect]
     Indication: NUCLEAR MAGNETIC RESONANCE IMAGING
     Dosage: 4 ML, 1 DOSE, INTRAVENOUS
     Route: 042
     Dates: start: 20050928, end: 20050928
  2. COAPROVEL (IRBESARTAN) [Concomitant]
  3. RAMIPRIL [Concomitant]
  4. KARDEGIC /FRA/ (ACETYLSALICYLATE LYSINE) [Concomitant]
  5. DILTIAZEM HYDROCHLORIDE [Concomitant]
  6. FUROSEMIDE [Concomitant]
  7. PRAVASTATIN [Concomitant]
  8. AMARYL [Concomitant]
  9. BRICANYL [Concomitant]
  10. FELODIPINE [Concomitant]

REACTIONS (3)
  - CEREBRAL HAEMORRHAGE [None]
  - EPILEPSY [None]
  - VOMITING [None]
